FAERS Safety Report 9030737 (Version 1)
Quarter: 2013Q1

REPORT INFORMATION
  Report Type: Spontaneous
  Country: GB (occurrence: GB)
  Receive Date: 20130123
  Receipt Date: 20130123
  Transmission Date: 20140127
  Serious: Yes (Life-Threatening, Hospitalization)
  Sender: FDA-Public Use
  Company Number: GB-TEVA-374817ISR

PATIENT
  Age: 81 Year
  Sex: Male

DRUGS (4)
  1. RAMIPRIL [Suspect]
     Indication: HYPERTENSION
     Dosage: 2.5 MILLIGRAM DAILY;
     Route: 048
     Dates: end: 20121119
  2. CANDESARTAN CILEXETIL [Interacting]
     Indication: HYPERTENSION
     Dosage: 2 MILLIGRAM DAILY;
     Route: 048
     Dates: start: 20101101
  3. CANDESARTAN CILEXETIL [Interacting]
     Indication: HYPERTENSION
     Dosage: 4 MILLIGRAM DAILY; WAS PRE-ADMISSION DOSE
     Route: 048
     Dates: end: 20121119
  4. NIFEDIPINE [Concomitant]
     Dosage: 60 MILLIGRAM DAILY;

REACTIONS (3)
  - Angioedema [Recovered/Resolved]
  - Drug prescribing error [Unknown]
  - Drug interaction [Recovered/Resolved]
